FAERS Safety Report 25907086 (Version 2)
Quarter: 2025Q4

REPORT INFORMATION
  Report Type: Spontaneous
  Country: CN (occurrence: CN)
  Receive Date: 20251010
  Receipt Date: 20251216
  Transmission Date: 20260118
  Serious: Yes (Hospitalization, Other)
  Sender: BAYER HEALTHCARE PHARMACEUTICALS INC.
  Company Number: CN-BAYER-2025A130058

PATIENT
  Age: 56 Year
  Sex: Male
  Weight: 72 kg

DRUGS (5)
  1. SORAFENIB [Suspect]
     Active Substance: SORAFENIB
     Indication: Hepatocellular carcinoma
     Dosage: 400 MG, BID
     Route: 048
     Dates: start: 202105, end: 202108
  2. SORAFENIB [Suspect]
     Active Substance: SORAFENIB
     Indication: Hepatocellular carcinoma
     Dosage: 300 MG, BID
     Route: 048
     Dates: start: 202108, end: 202110
  3. SORAFENIB [Suspect]
     Active Substance: SORAFENIB
     Indication: Hepatocellular carcinoma
     Dosage: 200 MG, BID
     Route: 048
     Dates: start: 202110, end: 202308
  4. REGORAFENIB [Suspect]
     Active Substance: REGORAFENIB
     Indication: Hepatocellular carcinoma
     Dosage: 160 MG, QD, (ADMINISTERED FOR 5 CONSECUTIVE DAYS PER WEEK WITH A 2-DAY REST PERIOD DURING THE WEEKEN
     Dates: start: 202308, end: 202411
  5. ENTECAVIR [Concomitant]
     Active Substance: ENTECAVIR
     Indication: Antiviral treatment
     Dosage: 0.5 MG, QD
     Dates: start: 2018

REACTIONS (20)
  - Arteriosclerosis [Recovering/Resolving]
  - Peripheral artery stenosis [Recovering/Resolving]
  - Peripheral artery occlusion [Recovering/Resolving]
  - Coronary artery stenosis [Recovering/Resolving]
  - Cerebral ischaemia [Recovering/Resolving]
  - Cerebral artery stenosis [Recovering/Resolving]
  - Carotid artery stenosis [Recovering/Resolving]
  - Acute myocardial infarction [Recovering/Resolving]
  - Palmar-plantar erythrodysaesthesia syndrome [None]
  - Secondary hypertension [Recovered/Resolved]
  - Proteinuria [Recovering/Resolving]
  - Haematuria [None]
  - Pain in extremity [None]
  - Hypoaesthesia [None]
  - Chest discomfort [None]
  - Dyspnoea [None]
  - Dizziness [None]
  - Therapeutic product effect incomplete [None]
  - Inappropriate schedule of product administration [None]
  - Product prescribing issue [None]

NARRATIVE: CASE EVENT DATE: 20210801
